FAERS Safety Report 24325197 (Version 1)
Quarter: 2024Q3

REPORT INFORMATION
  Report Type: Spontaneous
  Country: AR (occurrence: AR)
  Receive Date: 20240916
  Receipt Date: 20240916
  Transmission Date: 20241016
  Serious: Yes (Hospitalization)
  Sender: BOEHRINGER INGELHEIM
  Company Number: AR-BoehringerIngelheim-2024-BI-049983

PATIENT
  Age: 84 Year
  Sex: Female

DRUGS (1)
  1. DABIGATRAN [Suspect]
     Active Substance: DABIGATRAN
     Indication: Product used for unknown indication

REACTIONS (2)
  - Haemothorax [Unknown]
  - Fall [Unknown]
